FAERS Safety Report 25119275 (Version 3)
Quarter: 2025Q2

REPORT INFORMATION
  Report Type: Spontaneous
  Country: US (occurrence: US)
  Receive Date: 20250325
  Receipt Date: 20250415
  Transmission Date: 20250716
  Serious: Yes (Other)
  Sender: CSL BEHRING
  Company Number: US-BEH-2025199321

PATIENT
  Age: 59 Year
  Sex: Female

DRUGS (8)
  1. HIZENTRA [Suspect]
     Active Substance: HUMAN IMMUNOGLOBULIN G
     Indication: Immunodeficiency common variable
     Dosage: 10GM/50 ML, QW
     Route: 058
     Dates: start: 20250312
  2. ACETAMINOPHEN [Concomitant]
     Active Substance: ACETAMINOPHEN
  3. ADVAIR HFA [Concomitant]
     Active Substance: FLUTICASONE PROPIONATE\SALMETEROL XINAFOATE
  4. BERGAMOT OIL [Concomitant]
     Active Substance: BERGAMOT OIL
  5. VITAMINS [Concomitant]
     Active Substance: VITAMINS
     Dosage: UNK, QD
  6. TAMIFLU [Concomitant]
     Active Substance: OSELTAMIVIR PHOSPHATE
  7. CEFUROXIME [Concomitant]
     Active Substance: CEFUROXIME
  8. NAPROXEN [Concomitant]
     Active Substance: NAPROXEN

REACTIONS (8)
  - Drug ineffective [Unknown]
  - Influenza [Unknown]
  - Product dose omission issue [Unknown]
  - Abdominal pain [Unknown]
  - Abdominal distension [Unknown]
  - Diarrhoea [Unknown]
  - Infusion site swelling [Unknown]
  - Constipation [Unknown]
